FAERS Safety Report 5123569-0 (Version None)
Quarter: 2006Q4

REPORT INFORMATION
  Report Type: 
  Country: None (occurrence: None)
  Receive Date: 20061010
  Receipt Date: 20061002
  Transmission Date: 20070319
  Serious: Yes (Death, Hospitalization)
  Sender: FDA-Public Use
  Company Number: US-JNJFOC-20061000495

PATIENT
  Age: 83 Year

DRUGS (4)
  1. DOXIL [Suspect]
     Indication: T-CELL LYMPHOMA
     Route: 042
  2. ELSPAR [Suspect]
     Indication: T-CELL LYMPHOMA
  3. METHOTREXATE [Suspect]
     Indication: T-CELL LYMPHOMA
  4. PREDNISONE [Suspect]
     Indication: T-CELL LYMPHOMA

REACTIONS (6)
  - ARRHYTHMIA [None]
  - DEEP VEIN THROMBOSIS [None]
  - ELECTROMECHANICAL DISSOCIATION [None]
  - FLUID OVERLOAD [None]
  - PNEUMONIA ASPIRATION [None]
  - PULMONARY EMBOLISM [None]
